FAERS Safety Report 13023695 (Version 8)
Quarter: 2018Q3

REPORT INFORMATION
  Report Type: Spontaneous
  Country: US (occurrence: US)
  Receive Date: 20161213
  Receipt Date: 20180919
  Transmission Date: 20181010
  Serious: Yes (Hospitalization, Other)
  Sender: FDA-Public Use
  Company Number: US-PFIZER INC-2016571070

PATIENT
  Age: 68 Year
  Sex: Male
  Weight: 84 kg

DRUGS (19)
  1. GABAPENTIN. [Concomitant]
     Active Substance: GABAPENTIN
     Indication: HERPES ZOSTER
     Dosage: 300 MG, 1X/DAY(AT BEDTIME)
     Route: 048
  2. MYCOPHENOLATE [Concomitant]
     Active Substance: MYCOPHENOLIC ACID
     Indication: IMMUNOSUPPRESSION
     Dosage: 360 MG, 2X/DAY
     Route: 048
  3. LEVOTHYROXINE. [Concomitant]
     Active Substance: LEVOTHYROXINE
     Indication: THYROID DISORDER
     Dosage: 50 MG, 1X/DAY
  4. FAMOTIDINE. [Concomitant]
     Active Substance: FAMOTIDINE
     Indication: GASTROOESOPHAGEAL REFLUX DISEASE
     Dosage: 40 MG, 1X/DAY (AT BEDTIME)
     Route: 048
  5. CARVEDILOL. [Concomitant]
     Active Substance: CARVEDILOL
     Indication: BLOOD PRESSURE ABNORMAL
     Dosage: 12.5 MG, 2X/DAY (ONE IN THE MORNING AND ONE AT NIGHT)
     Route: 048
  6. CALCITRIOL. [Concomitant]
     Active Substance: CALCITRIOL
     Indication: CEREBROVASCULAR ACCIDENT
     Dosage: 0.25 UG, 1X/DAY
     Route: 048
  7. LEVOTHYROXINE. [Concomitant]
     Active Substance: LEVOTHYROXINE
     Dosage: 100 UG, WEEKLY (2 TABLETS EVERY SUNDAY)
     Route: 048
  8. RAPAMUNE [Suspect]
     Active Substance: SIROLIMUS
     Indication: LIVER TRANSPLANT
     Dosage: 1 MG, 1X/DAY
     Route: 048
     Dates: start: 201506
  9. PLAVIX [Concomitant]
     Active Substance: CLOPIDOGREL BISULFATE
     Dosage: 75 MG, 1X/DAY
  10. RAPAMUNE [Suspect]
     Active Substance: SIROLIMUS
     Indication: POSTOPERATIVE CARE
     Dosage: 5 MG, DAILY
     Route: 048
  11. ATORVASTATIN [Concomitant]
     Active Substance: ATORVASTATIN
     Indication: BLOOD CHOLESTEROL ABNORMAL
     Dosage: 20 MG, 1X/DAY (AT BED TIME)
     Route: 048
  12. LEVOTHYROXINE. [Concomitant]
     Active Substance: LEVOTHYROXINE
     Indication: DIABETES MELLITUS
     Dosage: 50 UG, 1X/DAY (50MCG TABLET BY MOUTH EVERY MORNING)
     Route: 048
  13. MYFORTIC [Concomitant]
     Active Substance: MYCOPHENOLATE SODIUM
     Indication: IMMUNOSUPPRESSION
     Dosage: UNK
     Dates: start: 201506
  14. NEURONTIN [Concomitant]
     Active Substance: GABAPENTIN
     Indication: HERPES ZOSTER
     Dosage: UNK
  15. HUMALOG [Concomitant]
     Active Substance: INSULIN LISPRO
     Indication: DIABETES MELLITUS
     Dosage: 50 IU, DAILY (30 UNITS IN MORNING AND 20 UNITS AT NIGHT BY INJECTION)
  16. WARFARIN [Concomitant]
     Active Substance: WARFARIN
     Indication: COAGULOPATHY
     Dosage: 5 MG, 1X/DAY(5MG TABLET BY MOUTH EVERY EVENING OR AS DIRECTED)
     Route: 048
     Dates: start: 201605
  17. RAPAMUNE [Suspect]
     Active Substance: SIROLIMUS
     Dosage: 1 MG, 1X/DAY(IN THE MORNING)
     Route: 048
  18. HUMALOG MIX [Concomitant]
     Active Substance: INSULIN LISPRO
     Dosage: UNK (75/25 KWIK PEN)
     Dates: start: 199007
  19. MAGNESIUM [Concomitant]
     Active Substance: MAGNESIUM
     Dosage: 250 MG, 1X/DAY
     Route: 048

REACTIONS (7)
  - Product use in unapproved indication [Unknown]
  - Dysphemia [Not Recovered/Not Resolved]
  - Renal disorder [Unknown]
  - Laboratory test abnormal [Unknown]
  - Aphasia [Not Recovered/Not Resolved]
  - Drug ineffective [Unknown]
  - Cerebrovascular accident [Not Recovered/Not Resolved]

NARRATIVE: CASE EVENT DATE: 20151222
